FAERS Safety Report 9360801 (Version 3)
Quarter: 2013Q3

REPORT INFORMATION
  Report Type: Report from Study
  Country: KR (occurrence: KR)
  Receive Date: 20130621
  Receipt Date: 20130913
  Transmission Date: 20140515
  Serious: Yes (Hospitalization)
  Sender: FDA-Public Use
  Company Number: KR-ELI_LILLY_AND_COMPANY-KR201306004051

PATIENT
  Age: 64 Year
  Sex: Male

DRUGS (6)
  1. LISPRO 50LIS50NPL KWIKPEN / MIRIOPEN [Suspect]
     Indication: TYPE 2 DIABETES MELLITUS
     Dosage: 20 IU, BID
     Route: 058
     Dates: start: 20130503
  2. LISPRO 50LIS50NPL KWIKPEN / MIRIOPEN [Suspect]
     Dosage: 30 IU, QD
     Route: 058
  3. LISPRO 50LIS50NPL KWIKPEN / MIRIOPEN [Suspect]
     Dosage: 22 IU, QD
     Route: 058
     Dates: start: 20130619
  4. LISPRO 50LIS50NPL KWIKPEN / MIRIOPEN [Suspect]
     Dosage: 12 IU, BID
     Route: 058
  5. LISPRO 50LIS50NPL KWIKPEN / MIRIOPEN [Suspect]
     Dosage: 12 IU, QD
     Route: 058
  6. LISPRO 50LIS50NPL KWIKPEN / MIRIOPEN [Suspect]
     Dosage: 8 IU, QD
     Route: 058

REACTIONS (2)
  - Hyperglycaemia [Unknown]
  - Hypoglycaemia [Not Recovered/Not Resolved]
